FAERS Safety Report 10769758 (Version 3)
Quarter: 2015Q1

REPORT INFORMATION
  Report Type: Spontaneous
  Country: JP (occurrence: JP)
  Receive Date: 20150206
  Receipt Date: 20150226
  Transmission Date: 20150721
  Serious: Yes (Hospitalization, Other)
  Sender: FDA-Public Use
  Company Number: JP-ABBVIE-15P-087-1340645-00

PATIENT
  Age: 37 Year
  Sex: Male

DRUGS (7)
  1. MYSTAN [Suspect]
     Active Substance: CLOBAZAM
     Indication: FRONTAL LOBE EPILEPSY
     Route: 048
     Dates: end: 20090622
  2. MYSTAN [Suspect]
     Active Substance: CLOBAZAM
     Route: 048
  3. TEGRETOL [Concomitant]
     Active Substance: CARBAMAZEPINE
     Indication: PRODUCT USED FOR UNKNOWN INDICATION
     Dates: start: 20090609
  4. ZONISAMIDE. [Suspect]
     Active Substance: ZONISAMIDE
     Indication: FRONTAL LOBE EPILEPSY
     Route: 048
     Dates: end: 20090609
  5. TEGRETOL [Concomitant]
     Active Substance: CARBAMAZEPINE
  6. DEPAKENE [Suspect]
     Active Substance: VALPROIC ACID
     Indication: FRONTAL LOBE EPILEPSY
     Route: 048
  7. TOPIRAMATE. [Suspect]
     Active Substance: TOPIRAMATE
     Indication: FRONTAL LOBE EPILEPSY
     Route: 048

REACTIONS (3)
  - Insomnia [Recovered/Resolved]
  - Delusion [Recovered/Resolved]
  - Postictal psychosis [Recovered/Resolved]

NARRATIVE: CASE EVENT DATE: 2008
